FAERS Safety Report 12490235 (Version 3)
Quarter: 2016Q3

REPORT INFORMATION
  Report Type: Spontaneous
  Country: FR (occurrence: FR)
  Receive Date: 20160622
  Receipt Date: 20160707
  Transmission Date: 20161109
  Serious: Yes (Life-Threatening, Hospitalization, Other)
  Sender: FDA-Public Use
  Company Number: FR-PFIZER INC-2016311700

PATIENT
  Age: 50 Year
  Sex: Female
  Weight: 110 kg

DRUGS (2)
  1. TRAMADOL. [Suspect]
     Active Substance: TRAMADOL
     Dosage: 6 BOXES OF 100 MG (SUPPOSED INGESTED DOSE OF 18 G)
  2. ALPRAZOLAM. [Suspect]
     Active Substance: ALPRAZOLAM
     Dosage: 2 BOXES OF 0.25 MG (SUPPOSED INGESTED DOSE OF 15 MG)

REACTIONS (11)
  - Drug level increased [Recovering/Resolving]
  - Acute kidney injury [Recovering/Resolving]
  - Mydriasis [Recovering/Resolving]
  - Toxicity to various agents [Recovering/Resolving]
  - Respiratory failure [Recovering/Resolving]
  - Atrioventricular block first degree [Recovering/Resolving]
  - Epilepsy [Recovering/Resolving]
  - Overdose [Recovering/Resolving]
  - Cardiogenic shock [Recovering/Resolving]
  - Hepatic failure [Recovering/Resolving]
  - Neuromyopathy [Recovering/Resolving]
